FAERS Safety Report 22593196 (Version 1)
Quarter: 2023Q2

REPORT INFORMATION
  Report Type: Other
  Country: DE (occurrence: None)
  Receive Date: 20230613
  Receipt Date: 20230613
  Transmission Date: 20230722
  Serious: Yes (Hospitalization)
  Sender: FDA-Public Use
  Company Number: DE-ROCHE-3335431

PATIENT
  Age: 79 Year
  Sex: Female

DRUGS (7)
  1. TOCILIZUMAB [Suspect]
     Active Substance: TOCILIZUMAB
     Indication: Rheumatoid arthritis
     Route: 065
     Dates: start: 202104
  2. TOCILIZUMAB [Suspect]
     Active Substance: TOCILIZUMAB
     Route: 065
     Dates: start: 202207
  3. BARICITINIB [Suspect]
     Active Substance: BARICITINIB
     Indication: Rheumatoid arthritis
     Route: 065
     Dates: start: 201711, end: 201801
  4. CERTOLIZUMAB PEGOL [Suspect]
     Active Substance: CERTOLIZUMAB PEGOL
     Indication: Rheumatoid arthritis
     Route: 065
     Dates: start: 201810, end: 201902
  5. RITUXIMAB [Suspect]
     Active Substance: RITUXIMAB
     Indication: Rheumatoid arthritis
     Route: 065
     Dates: start: 201905
  6. RITUXIMAB [Suspect]
     Active Substance: RITUXIMAB
     Route: 065
     Dates: start: 201911
  7. TOCILIZUMAB [Suspect]
     Active Substance: TOCILIZUMAB
     Indication: Product used for unknown indication
     Route: 042
     Dates: start: 20230209, end: 20230304

REACTIONS (6)
  - Leukopenia [Not Recovered/Not Resolved]
  - COVID-19 [Recovered/Resolved]
  - Foot deformity [Unknown]
  - Metatarsalgia [Unknown]
  - Leukopenia [Recovered/Resolved]
  - Chronic gastritis [Recovered/Resolved]

NARRATIVE: CASE EVENT DATE: 20220101
